FAERS Safety Report 9271472 (Version 1)
Quarter: 2013Q2

REPORT INFORMATION
  Report Type: Spontaneous
  Country: US (occurrence: US)
  Receive Date: 20130506
  Receipt Date: 20130506
  Transmission Date: 20140414
  Serious: No
  Sender: FDA-Public Use
  Company Number: US-PFIZER INC-2013135893

PATIENT
  Sex: Male

DRUGS (2)
  1. AMLODIPINE BESILATE [Suspect]
     Dosage: 5 MG, DAILY
     Dates: start: 201210
  2. AMLODIPINE BESILATE [Suspect]
     Dosage: 10 MG, DAILY

REACTIONS (1)
  - Constipation [Unknown]
